FAERS Safety Report 7989043-9 (Version None)
Quarter: 2011Q4

REPORT INFORMATION
  Report Type: 
  Country: None (occurrence: None)
  Receive Date: 20111215
  Receipt Date: 20111215
  Transmission Date: 20120403
  Serious: Yes (Hospitalization)
  Sender: FDA-Public Use
  Company Number: None

PATIENT
  Sex: Male
  Weight: 95 kg

DRUGS (2)
  1. TAXOTERE [Suspect]
     Dosage: 154 MG
     Dates: end: 20111117
  2. PREDNISONE TAB [Suspect]
     Dosage: 200MG
     Dates: end: 20111207

REACTIONS (5)
  - DEVICE OCCLUSION [None]
  - URINARY TRACT INFECTION [None]
  - WHITE BLOOD CELL COUNT DECREASED [None]
  - LYMPHOCYTE COUNT DECREASED [None]
  - NEUTROPHIL COUNT DECREASED [None]
